FAERS Safety Report 20482353 (Version 1)
Quarter: 2022Q1

REPORT INFORMATION
  Report Type: Spontaneous
  Country: FR (occurrence: FR)
  Receive Date: 20220217
  Receipt Date: 20220217
  Transmission Date: 20220423
  Serious: Yes (Hospitalization, Other)
  Sender: FDA-Public Use
  Company Number: FR-BIOGARAN-B22000138

PATIENT
  Age: 48 Year
  Sex: Male
  Weight: 140 kg

DRUGS (5)
  1. AMLODIPINE BESYLATE [Suspect]
     Active Substance: AMLODIPINE BESYLATE
     Indication: Product used for unknown indication
     Dosage: UNK
     Route: 065
  2. PERINDOPRIL [Suspect]
     Active Substance: PERINDOPRIL
     Indication: Product used for unknown indication
     Dosage: UNK
     Route: 065
  3. TRAMADOL [Suspect]
     Active Substance: TRAMADOL
     Indication: Product used for unknown indication
     Dosage: UNK
     Route: 065
  4. TROLNITRATE [Suspect]
     Active Substance: TROLNITRATE
     Indication: Atrial fibrillation
     Dosage: UNK (15 X 300 MG (4500 MG) PRESUMED)
     Route: 065
  5. TROLNITRATE [Suspect]
     Active Substance: TROLNITRATE
     Indication: Product used for unknown indication
     Dosage: UNK
     Route: 065

REACTIONS (5)
  - Suicide attempt [Unknown]
  - Hypotension [Unknown]
  - Hypoglycaemia [Unknown]
  - Intentional product misuse [Unknown]
  - Intentional overdose [Unknown]
